FAERS Safety Report 5717816-1 (Version None)
Quarter: 2008Q2

REPORT INFORMATION
  Report Type: 
  Country: None (occurrence: None)
  Receive Date: 20080425
  Receipt Date: 20080418
  Transmission Date: 20081010
  Serious: Yes (Hospitalization)
  Sender: FDA-Public Use
  Company Number: FR-AVENTIS-200811475FR

PATIENT
  Age: 22 Day
  Sex: Male
  Weight: 1.52 kg

DRUGS (2)
  1. LASILIX                            /00032601/ [Suspect]
     Indication: DRUG USE FOR UNKNOWN INDICATION
     Route: 042
     Dates: start: 20080222, end: 20080309
  2. VANCOMYCIN HCL [Suspect]
     Indication: JAUNDICE
     Route: 042
     Dates: start: 20080306, end: 20080309

REACTIONS (1)
  - BLOOD CREATININE INCREASED [None]
